FAERS Safety Report 9202724 (Version 2)
Quarter: 2013Q2

REPORT INFORMATION
  Report Type: Spontaneous
  Country: US (occurrence: US)
  Receive Date: 20130401
  Receipt Date: 20130429
  Transmission Date: 20140414
  Serious: Yes (Other)
  Sender: FDA-Public Use
  Company Number: US-PFIZER INC-2013102744

PATIENT
  Age: 72 Year
  Sex: Female
  Weight: 47.62 kg

DRUGS (5)
  1. CHANTIX [Suspect]
     Indication: SMOKING CESSATION THERAPY
     Dosage: 0.5 MG, 1X/DAY
     Route: 048
     Dates: start: 2009, end: 2009
  2. CHANTIX [Interacting]
     Dosage: 0.5 MG, 1X/DAY
     Route: 048
     Dates: start: 2013, end: 2013
  3. LIPITOR [Interacting]
     Indication: BLOOD CHOLESTEROL INCREASED
     Dosage: 40 MG, UNK
     Route: 048
     Dates: start: 2012
  4. FOSAMAX [Interacting]
     Indication: OSTEOPENIA
     Dosage: 70 MG, WEEKLY
     Route: 048
  5. XANAX [Concomitant]
     Indication: ANXIETY
     Dosage: UNK

REACTIONS (8)
  - Personality change [Recovered/Resolved]
  - Drug interaction [Unknown]
  - Body height decreased [Unknown]
  - Activities of daily living impaired [Recovered/Resolved]
  - Decreased appetite [Recovered/Resolved]
  - Insomnia [Recovered/Resolved]
  - Weight decreased [Unknown]
  - Alcohol intolerance [Recovered/Resolved]
